FAERS Safety Report 9207587 (Version 3)
Quarter: 2013Q3

REPORT INFORMATION
  Report Type: Report from Study
  Country: US (occurrence: US)
  Receive Date: 20130403
  Receipt Date: 20130729
  Transmission Date: 20140515
  Serious: Yes (Hospitalization)
  Sender: FDA-Public Use
  Company Number: US-ROCHE-1207733

PATIENT
  Age: 62 Year
  Sex: Male

DRUGS (12)
  1. BEVACIZUMAB [Suspect]
     Indication: MALIGNANT GLIOMA
     Dosage: LAST DOSE ON 02/APR/2013(CYCLE 20)
     Route: 042
     Dates: start: 20111007, end: 20130416
  2. ASPIRIN [Concomitant]
     Route: 065
     Dates: start: 20101102
  3. ATENOLOL [Concomitant]
     Route: 065
     Dates: start: 20100828
  4. ATORVASTATIN [Concomitant]
     Route: 065
     Dates: start: 20100827
  5. DIAZEPAM [Concomitant]
     Route: 065
     Dates: start: 20130219
  6. LEVETIRACETAM [Concomitant]
     Route: 065
     Dates: start: 20100827
  7. LORATADINE [Concomitant]
     Route: 065
     Dates: start: 20121129
  8. NIFEDIPINE [Concomitant]
     Route: 065
     Dates: start: 20120712
  9. OMEPRAZOLE [Concomitant]
     Route: 065
     Dates: start: 20110222
  10. DOCUSATE SODIUM [Concomitant]
     Route: 065
     Dates: start: 20130317
  11. SENNA [Concomitant]
     Route: 065
     Dates: start: 20130317
  12. SULFAMETHOXAZOLE/TRIMETHOPRIM [Concomitant]
     Dosage: 1 TABLET
     Route: 065
     Dates: start: 20130320, end: 20130416

REACTIONS (5)
  - Confusional state [Recovered/Resolved]
  - Vision blurred [Recovering/Resolving]
  - Confusional state [Recovering/Resolving]
  - Vision blurred [Recovered/Resolved]
  - Hyponatraemia [Recovered/Resolved]
